FAERS Safety Report 4834969-8 (Version None)
Quarter: 2005Q4

REPORT INFORMATION
  Report Type: 
  Country: None (occurrence: None)
  Receive Date: 20051114
  Receipt Date: 20051103
  Transmission Date: 20060501
  Serious: Yes (Hospitalization)
  Sender: FDA-Public Use
  Company Number: 163-20785-05090044

PATIENT
  Sex: Female

DRUGS (6)
  1. THALOMID [Suspect]
     Indication: MULTIPLE MYELOMA
     Dosage: 50 MG, DAILY, ORAL
     Route: 048
     Dates: start: 20020206, end: 20050101
  2. THALOMID [Suspect]
     Indication: MULTIPLE MYELOMA
     Dosage: 50 MG, DAILY, ORAL
     Route: 048
     Dates: start: 20050101
  3. ZOMETA [Suspect]
     Dosage: 4 MG, MONTHLY,
     Dates: start: 20020220, end: 20030623
  4. ZOMETA [Suspect]
     Dosage: 4 MG, MONTHLY,
     Dates: start: 20030101, end: 20030730
  5. ZOMETA [Suspect]
     Dosage: 4 MG, MONTHLY,
     Dates: start: 20030101, end: 20031028
  6. ZOMETA [Suspect]
     Dosage: 4 MG, MONTHLY,
     Dates: start: 20030101, end: 20050201

REACTIONS (5)
  - BACK PAIN [None]
  - BLOOD CREATININE INCREASED [None]
  - CONSTIPATION [None]
  - JOINT ARTHROPLASTY [None]
  - ROTATOR CUFF SYNDROME [None]
